FAERS Safety Report 8172768-2 (Version None)
Quarter: 2012Q1

REPORT INFORMATION
  Report Type: 
  Country: None (occurrence: None)
  Receive Date: 20120229
  Receipt Date: 20120221
  Transmission Date: 20120608
  Serious: Yes (Other)
  Sender: FDA-Public Use
  Company Number: ZA-ABBOTT-12P-143-0907695-00

PATIENT
  Age: 30 Year
  Sex: Male

DRUGS (2)
  1. VALPROIC ACID [Suspect]
     Indication: CONVULSION
     Dosage: TWICE A DAY
     Route: 048
     Dates: start: 20090101
  2. LAMOTRIGINE [Concomitant]
     Indication: PRODUCT USED FOR UNKNOWN INDICATION
     Dates: start: 20090101

REACTIONS (3)
  - CONVULSION [None]
  - MEDICATION RESIDUE [None]
  - DRUG INEFFECTIVE [None]
